FAERS Safety Report 18961623 (Version 1)
Quarter: 2021Q1

REPORT INFORMATION
  Report Type: Spontaneous
  Country: IT (occurrence: IT)
  Receive Date: 20210302
  Receipt Date: 20210302
  Transmission Date: 20210420
  Serious: Yes (Death)
  Sender: FDA-Public Use
  Company Number: IT-ALLERGAN-2108754US

PATIENT
  Sex: Female

DRUGS (2)
  1. CEFTAZIDIME;AVIBACTAM ? BP [Suspect]
     Active Substance: AVIBACTAM SODIUM\CEFTAZIDIME
     Indication: BACTERIAL SEPSIS
     Dosage: 1.25 G, 1X/DAY
     Route: 042
     Dates: start: 20210207, end: 20210209
  2. AZTREONAM. [Suspect]
     Active Substance: AZTREONAM
     Indication: BACTERIAL SEPSIS
     Dosage: 1 G, 1X/DAY
     Route: 042
     Dates: start: 20210207, end: 20210209

REACTIONS (2)
  - Thrombocytopenia [Fatal]
  - Off label use [Unknown]

NARRATIVE: CASE EVENT DATE: 20210207
